FAERS Safety Report 10153470 (Version 1)
Quarter: 2014Q2

REPORT INFORMATION
  Report Type: Spontaneous
  Country: ES (occurrence: ES)
  Receive Date: 20140505
  Receipt Date: 20140505
  Transmission Date: 20141212
  Serious: Yes (Other)
  Sender: FDA-Public Use
  Company Number: ES-B.I. PHARMACEUTICALS,INC./RIDGEFIELD-2014-BI-19116ES

PATIENT
  Age: 46 Year
  Sex: Male

DRUGS (1)
  1. JENTADUETO [Suspect]
     Indication: DIABETES MELLITUS
     Dosage: 2.5MG/850MG
     Route: 048
     Dates: start: 20131205, end: 20140321

REACTIONS (1)
  - Hypoglycaemia [Recovered/Resolved]
